FAERS Safety Report 9791189 (Version 1)
Quarter: 2013Q4

REPORT INFORMATION
  Report Type: Other
  Country: GB (occurrence: GB)
  Receive Date: 20131231
  Receipt Date: 20131231
  Transmission Date: 20140711
  Serious: Yes (Hospitalization)
  Sender: FDA-Public Use
  Company Number: GB-TAKEDA-2013TJP004059

PATIENT
  Sex: 0

DRUGS (10)
  1. LANSOPRAZOLE [Suspect]
     Indication: PRODUCT USED FOR UNKNOWN INDICATION
     Dosage: UNK
     Route: 065
  2. TRIMETHOPRIM [Suspect]
     Indication: URINARY TRACT INFECTION
     Dosage: 200 MG, BID
     Route: 048
  3. MEROPENEM [Suspect]
     Indication: PRODUCT USED FOR UNKNOWN INDICATION
     Dosage: 1 G, TID
     Route: 042
     Dates: start: 20110830, end: 20110905
  4. ERTAPENEM [Suspect]
     Indication: CHOLANGITIS
     Dosage: 1 G, QD
     Route: 042
     Dates: start: 20111028, end: 20111110
  5. CO-AMOXICLAV /00756801/ [Suspect]
     Indication: ANTIBIOTIC PROPHYLAXIS
     Dosage: 1.2 G, UNK
     Route: 042
     Dates: start: 20110916, end: 20110916
  6. FELODIPINE [Concomitant]
     Dosage: UNK
     Dates: start: 20071001
  7. LISINOPRIL [Concomitant]
     Dosage: UNK
     Dates: start: 20000920
  8. BENDROFLUMETHIAZIDE [Concomitant]
     Dosage: UNK
     Dates: start: 20000119
  9. CEFALEXIN [Concomitant]
     Dosage: UNK
     Dates: start: 20111021
  10. METRONIDAZOLE [Concomitant]
     Dosage: UNK
     Dates: start: 20111021

REACTIONS (1)
  - Clostridium difficile infection [Recovered/Resolved]
